FAERS Safety Report 8697257 (Version 4)
Quarter: 2018Q1

REPORT INFORMATION
  Report Type: Report from Study
  Country: GB (occurrence: GB)
  Receive Date: 20120801
  Receipt Date: 20180226
  Transmission Date: 20180509
  Serious: Yes (Death, Hospitalization, Other)
  Sender: FDA-Public Use
  Company Number: GB-ROCHE-1091885

PATIENT
  Age: 71 Year
  Sex: Female
  Weight: 57 kg

DRUGS (11)
  1. PARACETAMOL [Concomitant]
     Active Substance: ACETAMINOPHEN
     Dosage: 2 TABLETS EVERY 4-6 HOURS AS REQUIRED
     Route: 048
  2. PREGABALIN. [Concomitant]
     Active Substance: PREGABALIN
     Route: 048
  3. METANIUM OINTMENT [Concomitant]
     Dosage: AS REQUIRED
     Route: 061
  4. ASPIRIN. [Concomitant]
     Active Substance: ASPIRIN
     Dosage: IN THE MORNING
     Route: 048
  5. SENNA [Concomitant]
     Active Substance: SENNA LEAF\SENNOSIDES\SENNOSIDES A AND B
     Route: 048
  6. PREDNISOLONE. [Concomitant]
     Active Substance: PREDNISOLONE
     Route: 065
  7. ATORVASTATIN [Concomitant]
     Active Substance: ATORVASTATIN
     Route: 048
  8. RITUXIMAB. [Suspect]
     Active Substance: RITUXIMAB
     Indication: RHEUMATOID ARTHRITIS
     Route: 042
     Dates: start: 20100624, end: 20130501
  9. AMLODIPINE [Concomitant]
     Active Substance: AMLODIPINE BESYLATE
     Dosage: 1 TABLET IN THE MORNING
     Route: 048
  10. LANSOPRAZOLE. [Concomitant]
     Active Substance: LANSOPRAZOLE
     Route: 048
  11. BISOPROLOL [Concomitant]
     Active Substance: BISOPROLOL
     Route: 048

REACTIONS (13)
  - Acute myocardial infarction [Unknown]
  - Neutropenia [Unknown]
  - Vasculitis [Unknown]
  - Pneumonia [Fatal]
  - Cerebrovascular accident [Unknown]
  - Sepsis [Unknown]
  - Peripheral sensory neuropathy [Unknown]
  - Cellulitis [Unknown]
  - Laceration [Unknown]
  - Lymphocytosis [Unknown]
  - Diarrhoea [Unknown]
  - Emphysema [Fatal]
  - Skin ulcer [Unknown]

NARRATIVE: CASE EVENT DATE: 20110920
